FAERS Safety Report 10162965 (Version 1)
Quarter: 2014Q2

REPORT INFORMATION
  Report Type: Spontaneous
  Country: US (occurrence: US)
  Receive Date: 20140509
  Receipt Date: 20140509
  Transmission Date: 20141212
  Serious: Yes (Hospitalization, Other)
  Sender: FDA-Public Use
  Company Number: US-TEVA-480562USA

PATIENT
  Age: 42 Year
  Sex: Female

DRUGS (6)
  1. PACLITAXEL [Suspect]
     Indication: INVASIVE DUCTAL BREAST CARCINOMA
  2. CYCLOPHOSPHAMIDE [Suspect]
     Indication: INVASIVE DUCTAL BREAST CARCINOMA
  3. ADRIAMYCIN [Suspect]
     Indication: INVASIVE DUCTAL BREAST CARCINOMA
  4. SODIUM DIOCTYL SULFOSUCCINATE [Concomitant]
  5. MORPHINE [Concomitant]
  6. PREGABALIN [Concomitant]

REACTIONS (1)
  - Acute hepatitis C [Recovered/Resolved]
